FAERS Safety Report 17118262 (Version 1)
Quarter: 2019Q4

REPORT INFORMATION
  Report Type: Spontaneous
  Country: US (occurrence: US)
  Receive Date: 20191205
  Receipt Date: 20191205
  Transmission Date: 20200122
  Serious: Yes (Hospitalization)
  Sender: FDA-Public Use
  Company Number: US-GE HEALTHCARE LIFE SCIENCES-2019CSU006156

PATIENT
  Age: 23 Year
  Sex: Female

DRUGS (6)
  1. OMNIPAQUE [Suspect]
     Active Substance: IOHEXOL
     Indication: SPINAL MYELOGRAM
     Dosage: 10 ML INTO THE SUBARACHNOID SPACE, SINGLE
     Route: 037
  2. OMNIPAQUE [Suspect]
     Active Substance: IOHEXOL
     Indication: CSF TEST ABNORMAL
  3. OMNIPAQUE [Suspect]
     Active Substance: IOHEXOL
     Indication: SPINAL CORD DISORDER
  4. OMNIPAQUE [Suspect]
     Active Substance: IOHEXOL
     Indication: COMPUTERISED TOMOGRAM
  5. OMNIPAQUE [Suspect]
     Active Substance: IOHEXOL
     Indication: GAIT DISTURBANCE
  6. OMNIPAQUE [Suspect]
     Active Substance: IOHEXOL
     Indication: APRAXIA

REACTIONS (1)
  - Hydrocephalus [Recovered/Resolved]
